FAERS Safety Report 19589596 (Version 1)
Quarter: 2021Q3

REPORT INFORMATION
  Report Type: Report from Study
  Country: US (occurrence: US)
  Receive Date: 20210721
  Receipt Date: 20210721
  Transmission Date: 20211014
  Serious: Yes (Other)
  Sender: FDA-Public Use
  Company Number: US-ASTRAZENECA-2021A628971

PATIENT
  Sex: Female
  Weight: 56.7 kg

DRUGS (6)
  1. KOSELUGO [Suspect]
     Active Substance: SELUMETINIB
     Indication: BRAIN NEOPLASM
     Route: 048
     Dates: start: 20210123, end: 20210714
  2. KOSELUGO [Suspect]
     Active Substance: SELUMETINIB
     Indication: BRAIN NEOPLASM
     Route: 048
     Dates: start: 20210123, end: 20210714
  3. ADAPALENE. [Concomitant]
     Active Substance: ADAPALENE
     Dosage: UNKNOWN
     Route: 065
  4. BACTRIM [Concomitant]
     Active Substance: SULFAMETHOXAZOLE\TRIMETHOPRIM
     Dosage: UNKNOWN
     Route: 065
  5. ELIDEL [Concomitant]
     Active Substance: PIMECROLIMUS
     Dosage: UNKNOWN
     Route: 065
  6. CLINDAMYCIN PHOSPHATE. [Concomitant]
     Active Substance: CLINDAMYCIN PHOSPHATE
     Dosage: UNKNOWN
     Route: 065

REACTIONS (2)
  - Neoplasm [Unknown]
  - Malignant neoplasm progression [Not Recovered/Not Resolved]
